FAERS Safety Report 8167905-X (Version None)
Quarter: 2012Q1

REPORT INFORMATION
  Report Type: 
  Country: None (occurrence: None)
  Receive Date: 20120227
  Receipt Date: 20120222
  Transmission Date: 20120608
  Serious: Yes (Other)
  Sender: FDA-Public Use
  Company Number: US-GLAXOSMITHKLINE-A0876120A

PATIENT
  Age: 55 Year
  Sex: Female
  Weight: 73.2 kg

DRUGS (2)
  1. LAMICTAL [Suspect]
     Indication: BIPOLAR II DISORDER
     Dosage: 25MG PER DAY
     Route: 048
     Dates: start: 20100501, end: 20100601
  2. PREMARIN [Concomitant]

REACTIONS (22)
  - MYALGIA [None]
  - ORAL HERPES [None]
  - GENERAL PHYSICAL HEALTH DETERIORATION [None]
  - LARYNGEAL CANCER [None]
  - ARTHRALGIA [None]
  - RASH [None]
  - DRUG ERUPTION [None]
  - CONTUSION [None]
  - ADVERSE DRUG REACTION [None]
  - METASTASES TO LYMPH NODES [None]
  - EAR PAIN [None]
  - ALLERGY TO ARTHROPOD BITE [None]
  - INSOMNIA [None]
  - IMMUNE SYSTEM DISORDER [None]
  - APHONIA [None]
  - STEVENS-JOHNSON SYNDROME [None]
  - DRUG HYPERSENSITIVITY [None]
  - SINUSITIS [None]
  - SWELLING [None]
  - MALAISE [None]
  - DYSPHONIA [None]
  - ERYTHEMA [None]
